FAERS Safety Report 9115713 (Version 1)
Quarter: 2013Q1

REPORT INFORMATION
  Report Type: Spontaneous
  Country: CN (occurrence: CN)
  Receive Date: 20130225
  Receipt Date: 20130225
  Transmission Date: 20140127
  Serious: Yes (Other)
  Sender: FDA-Public Use
  Company Number: CN-PFIZER INC-2013064382

PATIENT
  Age: 55 Year
  Sex: Female

DRUGS (4)
  1. CLINDAMYCIN PHOSPHATE [Suspect]
     Dosage: 0.6 G ADDED TO 100 ML OF NORMAL SALINE TWICE DAILY
     Route: 041
  2. METOCLOPRAMIDE [Concomitant]
     Dosage: 10 MG, UNK
     Route: 030
  3. RANITIDINE [Concomitant]
     Dosage: 50MG ADDED INTO 250 ML OF 10% GLUCOSE, UNK
     Route: 041
  4. POTASSIUM CHLORIDE [Concomitant]
     Dosage: 10% POTASSIUM CHLORIDE 5ML ADDED INTO 10% GLUCOSE INJECTION 250ML
     Route: 041

REACTIONS (1)
  - Injection site joint movement impairment [Not Recovered/Not Resolved]
